FAERS Safety Report 16974804 (Version 4)
Quarter: 2020Q2

REPORT INFORMATION
  Report Type: Spontaneous
  Country: US (occurrence: US)
  Receive Date: 20191030
  Receipt Date: 20200429
  Transmission Date: 20200713
  Serious: No
  Sender: FDA-Public Use
  Company Number: US-PFIZER INC-2019466437

PATIENT
  Age: 73 Year
  Sex: Female

DRUGS (1)
  1. LYRICA [Suspect]
     Active Substance: PREGABALIN
     Dosage: UNK, 1X/DAY

REACTIONS (10)
  - Pain [Unknown]
  - Intentional product use issue [Unknown]
  - Nausea [Unknown]
  - Insomnia [Unknown]
  - Impaired work ability [Unknown]
  - Spinal stenosis [Unknown]
  - Musculoskeletal stiffness [Unknown]
  - Feeling abnormal [Unknown]
  - Malaise [Unknown]
  - Fibromyalgia [Unknown]
